FAERS Safety Report 25453681 (Version 1)
Quarter: 2025Q2

REPORT INFORMATION
  Report Type: Spontaneous
  Country: US (occurrence: US)
  Receive Date: 20250619
  Receipt Date: 20250619
  Transmission Date: 20250717
  Serious: No
  Sender: ROCHE
  Company Number: US-ROCHE-10000306532

PATIENT
  Sex: Female

DRUGS (1)
  1. ZELBORAF [Suspect]
     Active Substance: VEMURAFENIB
     Indication: Metabolic disorder
     Route: 048
     Dates: start: 202505

REACTIONS (4)
  - Rash [Unknown]
  - Lip blister [Unknown]
  - Rash erythematous [Unknown]
  - Off label use [Unknown]
